FAERS Safety Report 6066733-9 (Version None)
Quarter: 2009Q1

REPORT INFORMATION
  Report Type: 
  Country: None (occurrence: None)
  Receive Date: 20090205
  Receipt Date: 20080226
  Transmission Date: 20090719
  Serious: No
  Sender: FDA-Public Use
  Company Number: US-ABBOTT-08P-163-0440414-00

PATIENT
  Sex: Male
  Weight: 74.91 kg

DRUGS (2)
  1. VICODIN [Suspect]
     Indication: NECK PAIN
     Route: 048
     Dates: start: 20080201, end: 20080201
  2. VICODIN [Suspect]
     Indication: BACK PAIN

REACTIONS (1)
  - DRUG INEFFECTIVE [None]
